FAERS Safety Report 8902644 (Version 2)
Quarter: 2012Q4

REPORT INFORMATION
  Report Type: Report from Study
  Country: CA (occurrence: CA)
  Receive Date: 20121112
  Receipt Date: 20121120
  Transmission Date: 20130627
  Serious: Yes (Hospitalization)
  Sender: FDA-Public Use
  Company Number: CA-ABBOTT-12P-028-1004517-00

PATIENT
  Sex: Female
  Weight: 69.46 kg

DRUGS (2)
  1. HUMIRA [Suspect]
     Indication: CROHN^S DISEASE
     Dosage: Last dose 15 Oct 2012
     Route: 058
     Dates: end: 20121015
  2. TAMOXIFEN [Concomitant]
     Indication: BREAST CANCER
     Route: 048
     Dates: start: 2008

REACTIONS (5)
  - Gastrointestinal disorder [Recovered/Resolved]
  - Pancreatitis [Recovered/Resolved]
  - Pain [Recovered/Resolved]
  - Blood cholesterol increased [Unknown]
  - Blood potassium decreased [Unknown]
